FAERS Safety Report 5902851-0 (Version None)
Quarter: 2008Q3

REPORT INFORMATION
  Report Type: 
  Country: None (occurrence: None)
  Receive Date: 20080929
  Receipt Date: 20080929
  Transmission Date: 20090109
  Serious: Yes (Hospitalization)
  Sender: FDA-Public Use
  Company Number: None

PATIENT
  Sex: Female
  Weight: 91 kg

DRUGS (12)
  1. NOLVADEX [Suspect]
     Dosage: 185 MG
     Dates: end: 20071119
  2. ASPIRIN [Concomitant]
  3. SYNTHROID [Concomitant]
  4. TPOROL [Concomitant]
  5. VICODIN [Concomitant]
  6. CALCIUM [Concomitant]
  7. DESIPRAMINE HCL [Concomitant]
  8. HYDROCHLOROTHIAZIDE [Concomitant]
  9. METFORMIN HCL [Concomitant]
  10. VITAMIN D [Concomitant]
  11. XANAX [Concomitant]
  12. ZANTAC [Concomitant]

REACTIONS (1)
  - ARTHRALGIA [None]
